FAERS Safety Report 8525934-8 (Version None)
Quarter: 2012Q3

REPORT INFORMATION
  Report Type: 
  Country: None (occurrence: None)
  Receive Date: 20120720
  Receipt Date: 20120717
  Transmission Date: 20120928
  Serious: No
  Sender: FDA-Public Use
  Company Number: US-PFIZER INC-2012172736

PATIENT
  Sex: Female
  Weight: 100 kg

DRUGS (10)
  1. BYSTOLIC [Concomitant]
     Dosage: UNK
  2. IMDUR [Concomitant]
     Dosage: UNK
  3. NITROSTAT [Concomitant]
     Dosage: UNK
  4. LYRICA [Suspect]
     Dosage: 100 MG, 3X/DAY
     Dates: start: 20120710
  5. PROCARDIA [Concomitant]
     Dosage: 60 MG, DAILY
  6. ALTACE [Concomitant]
     Dosage: UNK
  7. LYRICA [Suspect]
     Indication: NEUROPATHY PERIPHERAL
     Dosage: 25 MG, UNK
     Dates: start: 20120706
  8. WARFARIN SODIUM [Concomitant]
     Dosage: UNK, 2X/DAY
  9. CROTAMITON [Concomitant]
     Dosage: UNK
  10. ALDACTONE [Concomitant]
     Dosage: UNK

REACTIONS (2)
  - PAIN [None]
  - MALAISE [None]
